FAERS Safety Report 5240525-2 (Version None)
Quarter: 2007Q1

REPORT INFORMATION
  Report Type: 
  Country: None (occurrence: None)
  Receive Date: 20070219
  Receipt Date: 20070206
  Transmission Date: 20070707
  Serious: Yes (Other)
  Sender: FDA-Public Use
  Company Number: PHNU2007DE00797

PATIENT
  Age: 26 Year
  Sex: Female

DRUGS (1)
  1. ZOMETA [Suspect]
     Indication: OSTEOLYSIS
     Dosage: 4 MG, ONCE/SINGLE
     Route: 042
     Dates: start: 20070201

REACTIONS (2)
  - ACUTE PHASE REACTION [None]
  - IRITIS [None]
